FAERS Safety Report 9186154 (Version 1)
Quarter: 2013Q1

REPORT INFORMATION
  Report Type: Spontaneous
  Country: FR (occurrence: FR)
  Receive Date: 20130325
  Receipt Date: 20130325
  Transmission Date: 20140127
  Serious: Yes (Life-Threatening, Other)
  Sender: FDA-Public Use
  Company Number: FR-ASTRAZENECA-2013SE18303

PATIENT
  Age: 18019 Day
  Sex: Female

DRUGS (10)
  1. XEROQUEL [Suspect]
     Route: 048
     Dates: start: 20130112
  2. ABILIFY [Suspect]
     Route: 048
     Dates: start: 20130112
  3. ZOLOFT [Suspect]
     Route: 048
     Dates: start: 20130112
  4. TERCIAN [Suspect]
     Indication: ANXIETY
     Dosage: 2 TABLETS BEFORE GOING TO BED UNTIL HOSPITALIZATION
     Route: 048
     Dates: start: 20130112
  5. TERCIAN [Suspect]
     Indication: ANXIETY
     Dosage: 1 TABLET IN THE MORNING, MIDDAY AND EVENING
     Route: 048
  6. ANAFRANIL [Suspect]
     Route: 048
  7. LYSANXIA [Suspect]
     Route: 048
  8. IMOVANE [Suspect]
     Route: 048
  9. EFFEXOR [Suspect]
     Route: 048
     Dates: start: 20130112
  10. RIVOTRIL [Concomitant]

REACTIONS (8)
  - Toxicity to various agents [Recovered/Resolved]
  - Acute respiratory distress syndrome [Recovered/Resolved]
  - Pneumonia aspiration [Recovered/Resolved]
  - Electrocardiogram QT prolonged [Recovered/Resolved]
  - Bezoar [Recovered/Resolved]
  - Coma [Unknown]
  - Oliguria [Unknown]
  - Syncope [Unknown]
